FAERS Safety Report 6064271-0 (Version None)
Quarter: 2009Q1

REPORT INFORMATION
  Report Type: 
  Country: None (occurrence: None)
  Receive Date: 20090204
  Receipt Date: 20090121
  Transmission Date: 20090719
  Serious: Yes (Hospitalization)
  Sender: FDA-Public Use
  Company Number: BR-BIOGENIDEC-2009BI003143

PATIENT
  Age: 60 Year
  Sex: Female
  Weight: 85 kg

DRUGS (3)
  1. AVONEX [Suspect]
     Indication: MULTIPLE SCLEROSIS
     Route: 030
     Dates: end: 20060101
  2. AVONEX [Suspect]
     Route: 030
     Dates: start: 20060101
  3. CORTISONE [Concomitant]

REACTIONS (5)
  - DYSPNOEA [None]
  - EMBOLISM [None]
  - FALL [None]
  - GAIT DISTURBANCE [None]
  - VERTEBRAL INJURY [None]
